FAERS Safety Report 8210793-3 (Version None)
Quarter: 2012Q1

REPORT INFORMATION
  Report Type: 
  Country: None (occurrence: None)
  Receive Date: 20120315
  Receipt Date: 20120308
  Transmission Date: 20120608
  Serious: No
  Sender: FDA-Public Use
  Company Number: US-BIOGENIDEC-2012BI008537

PATIENT
  Age: 59 Year
  Sex: Female

DRUGS (2)
  1. MEDICATION (NOS) [Concomitant]
     Route: 062
  2. TYSABRI [Suspect]
     Indication: MULTIPLE SCLEROSIS
     Route: 042
     Dates: start: 20071119

REACTIONS (2)
  - DIZZINESS [None]
  - ABASIA [None]
